FAERS Safety Report 10888252 (Version 1)
Quarter: 2015Q1

REPORT INFORMATION
  Report Type: Spontaneous
  Country: JP (occurrence: JP)
  Receive Date: 20150304
  Receipt Date: 20150304
  Transmission Date: 20150721
  Serious: Yes (Hospitalization, Other)
  Sender: FDA-Public Use
  Company Number: JP-009507513-1501JPN008495

PATIENT
  Age: 23 Year
  Sex: Female
  Weight: 50 kg

DRUGS (4)
  1. FLUMARIN [Suspect]
     Active Substance: FLOMOXEF SODIUM
     Dosage: DAILY DOSAGE UNKNOWN
     Route: 042
     Dates: start: 20150116, end: 20150116
  2. SEVOFRANE [Concomitant]
     Active Substance: SEVOFLURANE
     Dosage: UNK, DAILY DOSAGE UNKNOWN
     Route: 055
     Dates: start: 20150116
  3. ESLAX [Suspect]
     Active Substance: ROCURONIUM BROMIDE
     Dosage: 50 MG, QD, DIVIDED DOSE FREQUENCY UNKNOWN
     Route: 042
     Dates: start: 20150116, end: 20150116
  4. PROPOFOL. [Concomitant]
     Active Substance: PROPOFOL
     Dosage: 100 MG, QD, DIVIDED DOSE FREQUENCY UNKNOWN
     Route: 042
     Dates: start: 20150116

REACTIONS (2)
  - Anaphylactic reaction [Recovered/Resolved]
  - Dysphagia [Recovering/Resolving]

NARRATIVE: CASE EVENT DATE: 20150116
